FAERS Safety Report 6249581-6 (Version None)
Quarter: 2009Q2

REPORT INFORMATION
  Report Type: 
  Country: None (occurrence: None)
  Receive Date: 20090629
  Receipt Date: 20090528
  Transmission Date: 20091009
  Serious: No
  Sender: FDA-Public Use
  Company Number: US-BAYER-200911669BCC

PATIENT
  Sex: Female
  Weight: 57 kg

DRUGS (1)
  1. ALEVE [Suspect]
     Indication: BACK PAIN
     Route: 048

REACTIONS (1)
  - NERVOUSNESS [None]
